FAERS Safety Report 8994573 (Version 2)
Quarter: 2013Q1

REPORT INFORMATION
  Report Type: Spontaneous
  Country: US (occurrence: US)
  Receive Date: 20130102
  Receipt Date: 20130204
  Transmission Date: 20140127
  Serious: No
  Sender: FDA-Public Use
  Company Number: US-AMGEN-USASP2012079248

PATIENT
  Age: 60 Year
  Sex: Male
  Weight: 96.6 kg

DRUGS (8)
  1. ENBREL [Suspect]
     Indication: PSORIATIC ARTHROPATHY
     Dosage: 50 MG, QWK
     Route: 058
     Dates: start: 20070305
  2. ENBREL [Suspect]
     Indication: PSORIASIS
  3. CLOBETASOL [Concomitant]
     Indication: PSORIASIS
     Dosage: 0.05 %, BID
     Route: 061
     Dates: start: 20070212
  4. SIMVASTATIN [Concomitant]
     Indication: BLOOD CHOLESTEROL
     Dosage: UNK UNK, QD
     Route: 048
  5. LISINOPRIL [Concomitant]
     Indication: BLOOD PRESSURE
     Dosage: UNK UNK, QD
     Route: 048
  6. METFORMIN [Concomitant]
     Indication: DIABETES MELLITUS
     Dosage: UNK UNK, QD
     Route: 048
  7. BYDUREON [Concomitant]
     Indication: DIABETES MELLITUS
     Dosage: UNK UNK, QWK
     Route: 058
  8. TRAMADOL [Concomitant]
     Indication: PAIN
     Dosage: UNK UNK, TID
     Route: 048

REACTIONS (1)
  - Sinusitis [Not Recovered/Not Resolved]
